FAERS Safety Report 10756021 (Version 1)
Quarter: 2015Q1

REPORT INFORMATION
  Report Type: Spontaneous
  Country: GR (occurrence: GR)
  Receive Date: 20150202
  Receipt Date: 20150202
  Transmission Date: 20150721
  Serious: Yes (Other)
  Sender: FDA-Public Use
  Company Number: GR-MYLANLABS-2015M1002641

PATIENT

DRUGS (7)
  1. HYDROCORTISONE. [Concomitant]
     Active Substance: HYDROCORTISONE
     Route: 065
  2. CABERGOLINE. [Suspect]
     Active Substance: CABERGOLINE
     Dosage: 1 MG, QW
     Route: 065
  3. LEVOTHYROXINE SODIUM. [Concomitant]
     Active Substance: LEVOTHYROXINE SODIUM
     Route: 065
  4. TESTOSTERONE. [Concomitant]
     Active Substance: TESTOSTERONE
     Route: 065
  5. CABERGOLINE. [Suspect]
     Active Substance: CABERGOLINE
     Dosage: 1.5 MG, QW
     Route: 065
  6. CABERGOLINE. [Suspect]
     Active Substance: CABERGOLINE
     Dosage: 3.5 MG, QW
     Route: 065
  7. PHENYTOIN. [Concomitant]
     Active Substance: PHENYTOIN
     Indication: GENERALISED TONIC-CLONIC SEIZURE
     Route: 065

REACTIONS (1)
  - Brain herniation [Recovering/Resolving]
